FAERS Safety Report 19293347 (Version 2)
Quarter: 2021Q4

REPORT INFORMATION
  Report Type: Spontaneous
  Country: US (occurrence: US)
  Receive Date: 20210524
  Receipt Date: 20211018
  Transmission Date: 20220303
  Serious: No
  Sender: FDA-Public Use
  Company Number: US-SA-SAC20210520000994

PATIENT
  Age: 53 Year
  Sex: Female

DRUGS (1)
  1. CEREZYME [Suspect]
     Active Substance: IMIGLUCERASE
     Indication: Gaucher^s disease
     Dosage: 4000 U, QOW
     Route: 041
     Dates: start: 20200818

REACTIONS (2)
  - Weight increased [Unknown]
  - Product dose omission issue [Unknown]
